FAERS Safety Report 10781407 (Version 1)
Quarter: 2015Q1

REPORT INFORMATION
  Report Type: Spontaneous
  Country: US (occurrence: None)
  Receive Date: 20150209
  Receipt Date: 20150209
  Transmission Date: 20150721
  Serious: Yes (Life-Threatening, Other)
  Sender: FDA-Public Use
  Company Number: None

PATIENT
  Age: 71 Year
  Sex: Male
  Weight: 77.11 kg

DRUGS (1)
  1. OXAZEPAM 30 MG SANDOZ [Suspect]
     Active Substance: OXAZEPAM
     Indication: ANXIETY
     Dosage: 3 CAPSULES (10 TO 15 YEARS)
     Route: 048

REACTIONS (6)
  - Headache [None]
  - Eye pain [None]
  - Visual impairment [None]
  - Product quality issue [None]
  - Unevaluable event [None]
  - Mental impairment [None]

NARRATIVE: CASE EVENT DATE: 20141203
